FAERS Safety Report 9822503 (Version 1)
Quarter: 2014Q1

REPORT INFORMATION
  Report Type: Spontaneous
  Country: IT (occurrence: IT)
  Receive Date: 20140116
  Receipt Date: 20140116
  Transmission Date: 20141002
  Serious: Yes (Hospitalization)
  Sender: FDA-Public Use
  Company Number: IT-BRISTOL-MYERS SQUIBB COMPANY-20012274

PATIENT
  Age: 67 Year
  Sex: Female

DRUGS (11)
  1. COUMADIN TABS 5 MG [Suspect]
     Indication: ATRIAL FIBRILLATION
     Route: 048
     Dates: start: 20130101, end: 20131202
  2. CALCITRIOL [Concomitant]
     Route: 048
  3. CORDARONE [Concomitant]
     Dosage: TABS
     Route: 048
  4. NEXIUM [Concomitant]
     Dosage: TABS
     Route: 048
  5. CARDICOR [Concomitant]
     Dosage: TABS
     Route: 048
  6. LYRICA [Concomitant]
     Dosage: CAPS?500 MG TABS ORAL?0.5 MG
     Route: 048
  7. SEACOR [Concomitant]
     Route: 048
  8. APROVEL TABS 150 MG [Concomitant]
     Route: 048
  9. OXYCONTIN [Concomitant]
     Dosage: TABS
     Route: 048
  10. HUMALOG [Concomitant]
     Dosage: DOSAGE/54/IU/S.C
     Route: 058
  11. LEVEMIR [Concomitant]
     Dosage: 100 U/ML INJECTION SOLUTION^ DOSAGE/10/IU/S.C
     Route: 058

REACTIONS (7)
  - Cardiac failure [Unknown]
  - Renal failure acute [Unknown]
  - Weight increased [Unknown]
  - Dyspnoea [Unknown]
  - Hypersomnia [Unknown]
  - Overdose [Unknown]
  - Pruritus [Unknown]
